FAERS Safety Report 8254929-7 (Version None)
Quarter: 2012Q2

REPORT INFORMATION
  Report Type: 
  Country: None (occurrence: None)
  Receive Date: 20120403
  Receipt Date: 20120326
  Transmission Date: 20120825
  Serious: No
  Sender: FDA-Public Use
  Company Number: US-PFIZER INC-2012080435

PATIENT
  Sex: Female

DRUGS (5)
  1. VISTARIL [Suspect]
     Indication: URTICARIA
     Dosage: 50 MG, 3X/DAY
     Dates: start: 20120323
  2. ZANTAC [Suspect]
     Indication: VOMITING
     Dosage: 150 MG, 3X/DAY
     Dates: start: 20120323
  3. BENADRYL [Suspect]
     Indication: ANAPHYLACTIC REACTION
     Dosage: UNK
     Dates: start: 20120321, end: 20120301
  4. VALIUM [Suspect]
     Indication: PRURITUS
     Dosage: 2 MG, 3X/DAY
     Dates: start: 20120323
  5. SYNTHROID [Concomitant]
     Indication: THYROID DISORDER
     Dosage: 0.175 MG, DAILY

REACTIONS (1)
  - DRUG INEFFECTIVE [None]
